FAERS Safety Report 7964313-9 (Version None)
Quarter: 2011Q4

REPORT INFORMATION
  Report Type: 
  Country: None (occurrence: None)
  Receive Date: 20111208
  Receipt Date: 20111128
  Transmission Date: 20120403
  Serious: Yes (Hospitalization)
  Sender: FDA-Public Use
  Company Number: FR-JNJFOC-20111108411

PATIENT
  Sex: Female

DRUGS (10)
  1. ALENDRONATE SODIUM [Concomitant]
     Route: 048
     Dates: start: 20090601, end: 20111106
  2. LYRICA [Suspect]
     Indication: PRODUCT USED FOR UNKNOWN INDICATION
     Route: 048
     Dates: start: 20090601, end: 20101206
  3. ALENDRONIC ACID [Suspect]
     Indication: PRODUCT USED FOR UNKNOWN INDICATION
     Route: 048
     Dates: start: 20090601, end: 20101206
  4. CIRCADIN [Concomitant]
     Route: 048
     Dates: start: 20090601, end: 20101206
  5. CHONDROSULF [Concomitant]
     Route: 048
     Dates: start: 20090601, end: 20101206
  6. OMEPRAZOLE [Suspect]
     Indication: PRODUCT USED FOR UNKNOWN INDICATION
     Route: 048
     Dates: start: 20101202, end: 20101206
  7. ACETAMINOPHEN AND TRAMADOL HCL [Suspect]
     Indication: PRODUCT USED FOR UNKNOWN INDICATION
     Route: 048
     Dates: start: 20101202, end: 20101206
  8. CALCIUM CARBONATE [Concomitant]
     Route: 048
     Dates: start: 20090601, end: 20101206
  9. TANAKAN [Concomitant]
     Route: 048
     Dates: start: 20090601, end: 20101206
  10. CARTREX [Concomitant]
     Route: 048
     Dates: start: 20101202, end: 20101206

REACTIONS (5)
  - CONDITION AGGRAVATED [None]
  - DEPRESSED LEVEL OF CONSCIOUSNESS [None]
  - CONFUSIONAL STATE [None]
  - FALL [None]
  - HYPONATRAEMIA [None]
